FAERS Safety Report 17821305 (Version 2)
Quarter: 2020Q2

REPORT INFORMATION
  Report Type: Report from Study
  Country: IT (occurrence: IT)
  Receive Date: 20200525
  Receipt Date: 20200615
  Transmission Date: 20200714
  Serious: Yes (Other)
  Sender: FDA-Public Use
  Company Number: IT-ACCORD-183207

PATIENT
  Age: 78 Year
  Sex: Female

DRUGS (7)
  1. LANSOPRAZOLE. [Concomitant]
     Active Substance: LANSOPRAZOLE
  2. ACETYLSALICYLIC ACID [Concomitant]
     Active Substance: ASPIRIN
  3. IBANDRONIC ACID. [Concomitant]
     Active Substance: IBANDRONIC ACID
  4. FLECAINIDE [Concomitant]
     Active Substance: FLECAINIDE
  5. RAMIPRIL. [Suspect]
     Active Substance: RAMIPRIL
     Indication: HYPERTENSION
     Route: 048
  6. TRUSOPT [Concomitant]
     Active Substance: DORZOLAMIDE HYDROCHLORIDE
     Dosage: STRENGTH: 20 MG/ML
  7. MEDROL [Interacting]
     Active Substance: METHYLPREDNISOLONE
     Indication: MYALGIA
     Dosage: STRENGTH: 4 MG
     Route: 048
     Dates: start: 20200218, end: 20200221

REACTIONS (2)
  - Blood pressure increased [Recovered/Resolved]
  - Drug interaction [Unknown]

NARRATIVE: CASE EVENT DATE: 20200221
